FAERS Safety Report 17869790 (Version 1)
Quarter: 2020Q2

REPORT INFORMATION
  Report Type: Spontaneous
  Country: US (occurrence: US)
  Receive Date: 20200608
  Receipt Date: 20200608
  Transmission Date: 20200714
  Serious: Yes (Hospitalization, Other)
  Sender: FDA-Public Use
  Company Number: US-MICRO LABS LIMITED-ML2020-01753

PATIENT
  Age: 89 Year
  Sex: Male

DRUGS (7)
  1. LOTEPREDNOL ETABONATE [Suspect]
     Active Substance: LOTEPREDNOL ETABONATE
     Indication: GLAUCOMA
     Dosage: THREE TIMES PER DAY IN THE LEFT EYE
  2. DOXYCYCLINE. [Concomitant]
     Active Substance: DOXYCYCLINE
     Route: 048
  3. LATANOPROST. [Suspect]
     Active Substance: LATANOPROST
     Dosage: ONCE AT NIGHT IN THE LEFT EYE
  4. INTERFERON ALFA 2B 1000000 UNITS PER ML [Suspect]
     Active Substance: INTERFERON ALFA-2B
     Route: 061
  5. VIGAMOX [Concomitant]
     Active Substance: MOXIFLOXACIN HYDROCHLORIDE
  6. PREDNISOLONE ACETATE 1 % [Suspect]
     Active Substance: PREDNISOLONE ACETATE
     Dosage: WEEKLY 4,3,2,1 PREDNISOLONE ACETATE 1% TAPER.
  7. DORZOLAMIDE [Suspect]
     Active Substance: DORZOLAMIDE
     Dosage: ONCE IN THE MORNING IN THE LEFT EYE

REACTIONS (3)
  - Corneal perforation [Unknown]
  - Ulcerative keratitis [Unknown]
  - Off label use [Unknown]
